FAERS Safety Report 6264140-7 (Version None)
Quarter: 2009Q3

REPORT INFORMATION
  Report Type: 
  Country: None (occurrence: None)
  Receive Date: 20090710
  Receipt Date: 20090630
  Transmission Date: 20100115
  Serious: Yes (Other)
  Sender: FDA-Public Use
  Company Number: US-PFIZER INC-2009214732

PATIENT
  Sex: Female
  Weight: 95.238 kg

DRUGS (2)
  1. LIPITOR [Suspect]
     Indication: CORONARY ARTERY DISEASE
     Dosage: 80 MG, 1X/DAY
     Route: 048
  2. LIPITOR [Suspect]
     Indication: LIPIDS INCREASED

REACTIONS (5)
  - ASTHENIA [None]
  - BLOOD CREATINE PHOSPHOKINASE INCREASED [None]
  - MUSCLE ATROPHY [None]
  - MYOSITIS [None]
  - SLUGGISHNESS [None]
